FAERS Safety Report 12699809 (Version 1)
Quarter: 2016Q3

REPORT INFORMATION
  Report Type: Report from Study
  Country: US (occurrence: US)
  Receive Date: 20160830
  Receipt Date: 20160830
  Transmission Date: 20161109
  Serious: Yes (Hospitalization)
  Sender: FDA-Public Use
  Company Number: US-JNJFOC-20160303705

PATIENT
  Age: 64 Year
  Sex: Male
  Weight: 78.4 kg

DRUGS (2)
  1. INFLIXIMAB, RECOMBINANT [Suspect]
     Active Substance: INFLIXIMAB
     Indication: PSORIASIS
     Route: 042
     Dates: start: 2005, end: 200712
  2. ADALIMUMAB [Suspect]
     Active Substance: ADALIMUMAB
     Indication: PSORIASIS
     Route: 065
     Dates: start: 200704

REACTIONS (6)
  - Bronchopulmonary aspergillosis allergic [Recovered/Resolved]
  - Acute respiratory failure [Recovered/Resolved]
  - Asthma [Recovered/Resolved]
  - Chronic obstructive pulmonary disease [Recovered/Resolved]
  - Pathogen resistance [Recovered/Resolved]
  - Chronic sinusitis [Recovered/Resolved]

NARRATIVE: CASE EVENT DATE: 20150910
